FAERS Safety Report 5958598-8 (Version None)
Quarter: 2008Q4

REPORT INFORMATION
  Report Type: 
  Country: None (occurrence: None)
  Receive Date: 20081119
  Receipt Date: 20081107
  Transmission Date: 20090506
  Serious: Yes (Death)
  Sender: FDA-Public Use
  Company Number: JP-PFIZER INC-2008070655

PATIENT
  Sex: Male
  Weight: 56 kg

DRUGS (7)
  1. SUTENT [Suspect]
     Indication: RENAL CELL CARCINOMA
     Route: 048
     Dates: start: 20080808, end: 20080817
  2. VASOLAN [Concomitant]
     Route: 048
     Dates: start: 20060301
  3. ASPIRIN [Concomitant]
     Route: 048
     Dates: start: 20060301
  4. RABEPRAZOLE SODIUM [Concomitant]
     Route: 048
     Dates: start: 20060301
  5. PREDONINE [Concomitant]
     Route: 048
     Dates: start: 20080601
  6. MUCOSTA [Concomitant]
     Route: 048
     Dates: start: 20080601
  7. DEPAS [Concomitant]
     Route: 048
     Dates: start: 20080101

REACTIONS (2)
  - PNEUMONIA [None]
  - VENTRICULAR FIBRILLATION [None]
